FAERS Safety Report 24339270 (Version 3)
Quarter: 2024Q4

REPORT INFORMATION
  Report Type: Spontaneous
  Country: TW (occurrence: TW)
  Receive Date: 20240919
  Receipt Date: 20241002
  Transmission Date: 20250114
  Serious: Yes (Hospitalization, Other)
  Sender: MERCK
  Company Number: TW-009507513-2409TWN005203

PATIENT
  Age: 63 Year
  Sex: Female

DRUGS (3)
  1. PEMBROLIZUMAB [Suspect]
     Active Substance: PEMBROLIZUMAB
     Dosage: 200 MILLIGRAM, Q3W
     Route: 042
     Dates: start: 20240701, end: 202407
  2. TAXOL [Suspect]
     Active Substance: PACLITAXEL
     Indication: Breast cancer
     Dosage: STARTING DOSE: 136 MG, FLUCTUATED DOSAGE, QW
     Route: 042
     Dates: start: 20240701, end: 202407
  3. CARBOPLATIN [Suspect]
     Active Substance: CARBOPLATIN
     Indication: Breast cancer
     Dosage: STARTING DOSE: 177 MG, FLUCTUATED DOSAGE, QW
     Route: 042
     Dates: start: 20240701, end: 202407

REACTIONS (11)
  - Immune-mediated hepatitis [Recovered/Resolved]
  - Autoimmune hepatitis [Recovered/Resolved]
  - Primary biliary cholangitis [Recovered/Resolved]
  - Histiocytosis [Unknown]
  - Lymph node fibrosis [Unknown]
  - Lymphocytic infiltration [Unknown]
  - Dysphagia [Unknown]
  - Nausea [Unknown]
  - Fatigue [Recovering/Resolving]
  - Vomiting [Unknown]
  - Diarrhoea [Unknown]

NARRATIVE: CASE EVENT DATE: 20240101
